FAERS Safety Report 22344349 (Version 6)
Quarter: 2024Q4

REPORT INFORMATION
  Report Type: Spontaneous
  Country: US (occurrence: US)
  Receive Date: 20230519
  Receipt Date: 20241231
  Transmission Date: 20250114
  Serious: Yes (Other)
  Sender: PFIZER
  Company Number: US-PFIZER INC-PV202300080879

PATIENT
  Age: 77 Year
  Sex: Female

DRUGS (1)
  1. IBRANCE [Suspect]
     Active Substance: PALBOCICLIB
     Indication: Breast cancer metastatic
     Dosage: DAILY ON 1-21 OF 28 DAY CYCLE
     Route: 048

REACTIONS (2)
  - Drug dependence [Unknown]
  - Confusional state [Unknown]

NARRATIVE: CASE EVENT DATE: 20240312
